FAERS Safety Report 24217232 (Version 1)
Quarter: 2024Q3

REPORT INFORMATION
  Report Type: Spontaneous
  Country: CA (occurrence: CA)
  Receive Date: 20240816
  Receipt Date: 20240816
  Transmission Date: 20241016
  Serious: Yes (Life-Threatening)
  Sender: SANDOZ
  Company Number: CA-SANDOZ-SDZ2024CA072714

PATIENT
  Age: 80 Year
  Sex: Female

DRUGS (1)
  1. CEFTRIAXONE SODIUM [Suspect]
     Active Substance: CEFTRIAXONE SODIUM
     Indication: Pneumonia
     Dosage: UNK
     Route: 065

REACTIONS (5)
  - Anaphylactic reaction [Recovered/Resolved]
  - Peripheral swelling [Recovered/Resolved]
  - Pharyngeal swelling [Recovered/Resolved]
  - Erythema [Recovered/Resolved]
  - Urticaria [Recovered/Resolved]
